FAERS Safety Report 4961560-5 (Version None)
Quarter: 2006Q1

REPORT INFORMATION
  Report Type: 
  Country: None (occurrence: None)
  Receive Date: 20060329
  Receipt Date: 20060317
  Transmission Date: 20060701
  Serious: Yes (Hospitalization)
  Sender: FDA-Public Use
  Company Number: 2006038633

PATIENT
  Age: 14 Year
  Weight: 60 kg

DRUGS (5)
  1. PRAZOSIN GITS [Suspect]
     Indication: ILL-DEFINED DISORDER
     Dosage: 4 MG (2 MG, BID), PLACENTAL
  2. HYDROCHLOROTHIAZIDE [Suspect]
     Indication: ILL-DEFINED DISORDER
     Dosage: 50 MG, PLACENTAL
  3. ENALAPRIL MALEATE [Suspect]
     Indication: ILL-DEFINED DISORDER
     Dosage: SEE IMAGE
  4. LABETALOL HCL [Suspect]
     Indication: ILL-DEFINED DISORDER
     Dosage: 800 MG (400 MG, BID), PLACENTAL
  5. AMILORIDE (AMILORIDE) [Suspect]
     Indication: ILL-DEFINED DISORDER
     Dosage: 5 MG, PLACENTAL

REACTIONS (9)
  - DRUG EXPOSURE DURING PREGNANCY [None]
  - GLOMERULAR FILTRATION RATE DECREASED [None]
  - HYPOTENSION [None]
  - PH URINE INCREASED [None]
  - PROTEINURIA [None]
  - RENAL FAILURE ACUTE [None]
  - RENAL FAILURE NEONATAL [None]
  - RENAL TUBULAR ACIDOSIS [None]
  - RENIN-ANGIOTENSIN SYSTEM INHIBITION [None]
